FAERS Safety Report 18342299 (Version 1)
Quarter: 2020Q4

REPORT INFORMATION
  Report Type: Spontaneous
  Country: GB (occurrence: GB)
  Receive Date: 20201005
  Receipt Date: 20201005
  Transmission Date: 20210113
  Serious: Yes (Other)
  Sender: FDA-Public Use
  Company Number: GB-ADVANZ PHARMA-202009008957

PATIENT

DRUGS (3)
  1. PREDNISOLONE. [Suspect]
     Active Substance: PREDNISOLONE
     Indication: EYE INFLAMMATION
     Dosage: 1  [DRP] (DROP (1/12 MILLILITRE)) EVERY 1 HOURLY
     Route: 047
     Dates: start: 20200901, end: 20200904
  2. FML [Concomitant]
     Active Substance: FLUOROMETHOLONE
     Dosage: FOR OTHER EYE
  3. PREDNISOLONE. [Suspect]
     Active Substance: PREDNISOLONE
     Dosage: 1  [DRP] (DROP (1/12 MILLILITRE)),  2 HOURS
     Route: 047
     Dates: start: 20200904, end: 20200911

REACTIONS (4)
  - Fatigue [Recovering/Resolving]
  - Anxiety [Recovering/Resolving]
  - Depressed mood [Recovering/Resolving]
  - Hypoaesthesia [Recovering/Resolving]

NARRATIVE: CASE EVENT DATE: 20200902
